FAERS Safety Report 8923892 (Version 1)
Quarter: 2012Q4

REPORT INFORMATION
  Report Type: 
  Country: US (occurrence: US)
  Receive Date: 20121126
  Receipt Date: 20121126
  Transmission Date: 20130627
  Serious: Yes (Other)
  Sender: FDA-Public Use
  Company Number: US-ASTRAZENECA-2012SE87364

PATIENT
  Age: 79 Year
  Sex: Male
  Weight: 82.1 kg

DRUGS (2)
  1. SYMBICORT PMDI [Suspect]
     Indication: ASTHMA
     Dosage: 160MCG, 2 PUFFS, TWO TIMES A DAY
     Route: 055
     Dates: start: 2011
  2. PROSCAR [Concomitant]
     Indication: PROSTATOMEGALY
     Dosage: 0.5, DAILY
     Route: 048
     Dates: start: 2007

REACTIONS (2)
  - Corneal lesion [Unknown]
  - Cough [Unknown]
